FAERS Safety Report 15701794 (Version 1)
Quarter: 2018Q4

REPORT INFORMATION
  Report Type: Report from Study
  Country: NL (occurrence: NL)
  Receive Date: 20181208
  Receipt Date: 20181208
  Transmission Date: 20190205
  Serious: Yes (Life-Threatening, Hospitalization)
  Sender: FDA-Public Use
  Company Number: NL-TEVA-2018-NL-983265

PATIENT
  Age: 51 Year
  Sex: Female

DRUGS (9)
  1. CELECOXIB. [Concomitant]
     Active Substance: CELECOXIB
     Dosage: 200MG, 2X/D
     Dates: start: 20180703, end: 20181023
  2. PREDNISOLON [Concomitant]
     Active Substance: PREDNISOLONE
     Dosage: 10 MILLIGRAM DAILY; 10MG, 1X/D
     Dates: start: 20180821, end: 20181023
  3. FOLIUMZUUR [Concomitant]
     Active Substance: FOLIC ACID
     Dosage: 10MG, 1X/W
     Dates: start: 20180417
  4. PAROXETINE. [Concomitant]
     Active Substance: PAROXETINE
     Dosage: 20MG, 2X/D
  5. CALCI CHEW D3 [Concomitant]
     Active Substance: CALCIUM CARBONATE\CHOLECALCIFEROL
     Dosage: 1 DOSAGE FORMS DAILY; 1000/800MG/IE, 1X/D
     Dates: start: 20180821
  6. METHOTREXATE (METHOTREXATE SODIUM) [Concomitant]
     Active Substance: METHOTREXATE SODIUM
     Dosage: 20MG, 1X/W
     Dates: start: 20180703
  7. ORAAL ANTICONCEPTIVUM [Concomitant]
     Dosage: 1 DOSAGE FORMS DAILY; ?G, 1X/D
  8. SULFASALAZINE. [Suspect]
     Active Substance: SULFASALAZINE
     Indication: RHEUMATOID ARTHRITIS
     Dosage: 1000MG, 2X/D
     Route: 065
     Dates: start: 20180821, end: 20180926
  9. VALSARTAN. [Concomitant]
     Active Substance: VALSARTAN
     Dosage: MG, ONBEKEND

REACTIONS (4)
  - Liver function test abnormal [Recovered/Resolved]
  - Pyrexia [Recovered/Resolved]
  - Anaemia [Recovered/Resolved]
  - Meningitis aseptic [Recovered/Resolved]

NARRATIVE: CASE EVENT DATE: 20180919
